FAERS Safety Report 13430078 (Version 1)
Quarter: 2017Q2

REPORT INFORMATION
  Report Type: Spontaneous
  Country: US (occurrence: US)
  Receive Date: 20170411
  Receipt Date: 20170411
  Transmission Date: 20170830
  Serious: No
  Sender: FDA-Public Use
  Company Number: None

PATIENT
  Age: 79 Year
  Sex: Male

DRUGS (4)
  1. LENALIDOMIDE [Concomitant]
     Active Substance: LENALIDOMIDE
  2. PRAVASTATIN. [Concomitant]
     Active Substance: PRAVASTATIN
  3. TRAMADOL. [Concomitant]
     Active Substance: TRAMADOL
  4. REVLIMID [Suspect]
     Active Substance: LENALIDOMIDE
     Indication: MONOCLONAL GAMMOPATHY
     Dosage: 10MG DAILY X 21D/28D ORAL
     Route: 048
     Dates: start: 20170216

REACTIONS (7)
  - Constipation [None]
  - Drug ineffective [None]
  - Muscle spasms [None]
  - Rash [None]
  - Fatigue [None]
  - Headache [None]
  - Off label use [None]

NARRATIVE: CASE EVENT DATE: 20170221
